FAERS Safety Report 9112230 (Version 1)
Quarter: 2013Q1

REPORT INFORMATION
  Report Type: Spontaneous
  Country: US (occurrence: US)
  Receive Date: 20130219
  Receipt Date: 20130219
  Transmission Date: 20140127
  Serious: No
  Sender: FDA-Public Use
  Company Number: US-BRISTOL-MYERS SQUIBB COMPANY-16850653

PATIENT
  Age: 86 Year
  Sex: Female
  Weight: 61.22 kg

DRUGS (5)
  1. ORENCIA [Suspect]
     Indication: RHEUMATOID ARTHRITIS
     Dosage: INF:1ST:17MAY12,2ND:30MAY12,3RD:14JUN12,4TH:12JUL12, LAST:08NOV12.
     Route: 042
     Dates: start: 20120517
  2. METHOTREXATE [Suspect]
  3. SYNTHROID [Concomitant]
  4. LOSARTAN [Concomitant]
     Indication: BLOOD PRESSURE
  5. SALINE [Concomitant]

REACTIONS (4)
  - Stomatitis [Unknown]
  - Sinus congestion [Unknown]
  - Nasal congestion [Unknown]
  - Pain in extremity [Unknown]
